FAERS Safety Report 9098889 (Version 2)
Quarter: 2013Q1

REPORT INFORMATION
  Report Type: Spontaneous
  Country: US (occurrence: US)
  Receive Date: 20130213
  Receipt Date: 20130321
  Transmission Date: 20140127
  Serious: No
  Sender: FDA-Public Use
  Company Number: US-PFIZER INC-2013053262

PATIENT
  Age: 75 Year
  Sex: Female
  Weight: 87.08 kg

DRUGS (5)
  1. LYRICA [Suspect]
     Indication: FIBROMYALGIA
     Dosage: 150 MG, 3X/DAY
     Route: 048
  2. LYRICA [Suspect]
     Indication: NERVE INJURY
  3. ALEVE [Suspect]
     Indication: PAIN
     Dosage: UNK
  4. IBUPROFEN [Suspect]
     Indication: HEADACHE
     Dosage: 200 MG, UNK
     Dates: end: 2013
  5. IBUPROFEN [Suspect]
     Indication: PAIN

REACTIONS (3)
  - Muscle disorder [Unknown]
  - Hypoaesthesia [Unknown]
  - Drug ineffective [Unknown]
